FAERS Safety Report 10358550 (Version 1)
Quarter: 2014Q3

REPORT INFORMATION
  Report Type: Spontaneous
  Country: US (occurrence: US)
  Receive Date: 20140803
  Receipt Date: 20140803
  Transmission Date: 20150326
  Serious: No
  Sender: FDA-Public Use
  Company Number: US-009507513-1407USA012622

PATIENT
  Sex: Female
  Weight: 88.44 kg

DRUGS (2)
  1. BLOOD THINNER (UNSPECIFIED) [Suspect]
     Active Substance: UNSPECIFIED INGREDIENT
     Dosage: UNK
  2. NEXPLANON [Suspect]
     Active Substance: ETONOGESTREL
     Indication: CONTRACEPTION
     Dosage: ONE ROD, EVERY THREE YEARS
     Route: 059
     Dates: start: 20140623, end: 20140708

REACTIONS (1)
  - Implant site bruising [Recovered/Resolved]

NARRATIVE: CASE EVENT DATE: 2014
